FAERS Safety Report 9956330 (Version 2)
Quarter: 2014Q1

REPORT INFORMATION
  Report Type: Report from Study
  Country: JP (occurrence: JP)
  Receive Date: 20140304
  Receipt Date: 20140317
  Transmission Date: 20141002
  Serious: Yes (Death)
  Sender: FDA-Public Use
  Company Number: JP-TAKEDA-2014TJP002117

PATIENT
  Age: 82 Year
  Sex: Female

DRUGS (7)
  1. PIOGLITAZONE, GLIMEPIRIDE [Suspect]
     Indication: TYPE 2 DIABETES MELLITUS
     Dosage: 1 DF, QD
     Route: 048
     Dates: start: 20130128, end: 20130225
  2. GLACTIV [Concomitant]
     Indication: TYPE 2 DIABETES MELLITUS
     Dosage: 50 MG, 1 DAYS
     Route: 048
     Dates: start: 20121220
  3. RENIVACE [Concomitant]
     Dosage: UNK
     Route: 048
  4. FLUITRAN [Concomitant]
     Dosage: UNK
     Route: 048
  5. CRESTOR [Concomitant]
     Dosage: UNK
     Route: 048
  6. NEXIUM                             /01479302/ [Concomitant]
     Dosage: UNK
     Route: 048
  7. EVISTA [Concomitant]
     Dosage: UNK
     Route: 048

REACTIONS (1)
  - Marasmus [Fatal]
